FAERS Safety Report 13019098 (Version 1)
Quarter: 2016Q4

REPORT INFORMATION
  Report Type: Spontaneous
  Country: IN (occurrence: IN)
  Receive Date: 20161212
  Receipt Date: 20161212
  Transmission Date: 20170207
  Serious: Yes (Death, Life-Threatening, Hospitalization)
  Sender: FDA-Public Use
  Company Number: IN-SA-2016SA224146

PATIENT
  Age: 64 Year
  Sex: Male

DRUGS (2)
  1. CLOPIDOGREL BISULFATE. [Suspect]
     Active Substance: CLOPIDOGREL BISULFATE
     Indication: ANTIPLATELET THERAPY
     Route: 065
  2. ASPIRIN. [Suspect]
     Active Substance: ASPIRIN
     Indication: ANTIPLATELET THERAPY
     Route: 065

REACTIONS (13)
  - Pallor [Fatal]
  - Vessel puncture site haematoma [Fatal]
  - Haematoma [Fatal]
  - Blood pressure decreased [Fatal]
  - Haemoglobin decreased [Fatal]
  - Platelet count decreased [Unknown]
  - Activated partial thromboplastin time prolonged [Unknown]
  - Abdominal wall haematoma [Fatal]
  - Tachycardia [Fatal]
  - Thrombocytopenia [Unknown]
  - Prothrombin time prolonged [Unknown]
  - Haemorrhage [Fatal]
  - Melaena [Fatal]
